FAERS Safety Report 6035248-6 (Version None)
Quarter: 2009Q1

REPORT INFORMATION
  Report Type: 
  Country: None (occurrence: None)
  Receive Date: 20090109
  Receipt Date: 20081211
  Transmission Date: 20090719
  Serious: Yes (Other)
  Sender: FDA-Public Use
  Company Number: 123441

PATIENT
  Age: 60 Year
  Sex: Male

DRUGS (1)
  1. AMIODARONE HCL [Suspect]
     Indication: DRUG USE FOR UNKNOWN INDICATION

REACTIONS (5)
  - BRONCHIOLITIS [None]
  - LUNG ABSCESS [None]
  - LUNG NEOPLASM [None]
  - ORGANISING PNEUMONIA [None]
  - PLEURISY [None]
